FAERS Safety Report 15357668 (Version 1)
Quarter: 2018Q4

REPORT INFORMATION
  Report Type: Spontaneous
  Country: US (occurrence: KP)
  Receive Date: 20180906
  Receipt Date: 20180906
  Transmission Date: 20190204
  Serious: Yes (Other)
  Sender: FDA-Public Use
  Company Number: KP-HYGENIC CORPORATION-2054688

PATIENT
  Sex: Male

DRUGS (1)
  1. BIOFREEZE [Suspect]
     Active Substance: MENTHOL
     Route: 061

REACTIONS (1)
  - Application site burn [Recovering/Resolving]

NARRATIVE: CASE EVENT DATE: 20180819
